FAERS Safety Report 7466790-9 (Version None)
Quarter: 2011Q2

REPORT INFORMATION
  Report Type: 
  Country: None (occurrence: None)
  Receive Date: 20110509
  Receipt Date: 20100901
  Transmission Date: 20111010
  Serious: No
  Sender: FDA-Public Use
  Company Number: US-ALEXION-A201001117

PATIENT
  Sex: Female

DRUGS (2)
  1. SOLIRIS [Suspect]
     Indication: PAROXYSMAL NOCTURNAL HAEMOGLOBINURIA
     Dosage: UNK,
     Route: 042
     Dates: start: 20100825
  2. SOLIRIS [Suspect]
     Dosage: UNK, Q2W
     Route: 042

REACTIONS (8)
  - ASTHENIA [None]
  - BACK PAIN [None]
  - FATIGUE [None]
  - URINARY TRACT INFECTION [None]
  - ABDOMINAL PAIN [None]
  - BLOOD LACTATE DEHYDROGENASE DECREASED [None]
  - HEADACHE [None]
  - BLOOD LACTATE DEHYDROGENASE INCREASED [None]
